FAERS Safety Report 7259183-0 (Version None)
Quarter: 2011Q1

REPORT INFORMATION
  Report Type: 
  Country: None (occurrence: None)
  Receive Date: 20110129
  Receipt Date: 20100624
  Transmission Date: 20110831
  Serious: No
  Sender: FDA-Public Use
  Company Number: US-ABBOTT-10P-163-0653681-00

PATIENT
  Age: 57 Year
  Sex: Female

DRUGS (8)
  1. OMEPRAZOLE [Concomitant]
  2. MULTI-VITAMIN [Concomitant]
  3. SOY SUPPLEMENT [Concomitant]
  4. SINGULAIR [Concomitant]
  5. HUMIRA [Suspect]
     Indication: RHEUMATOID ARTHRITIS
     Dates: start: 20010101
  6. CRESTOR [Concomitant]
  7. SUCRALFATE [Concomitant]
  8. CALCIUM SUPPLEMENT [Concomitant]

REACTIONS (5)
  - INJECTION SITE HAEMORRHAGE [None]
  - INJECTION SITE PAIN [None]
  - WRONG TECHNIQUE IN DRUG USAGE PROCESS [None]
  - INJECTION SITE HAEMATOMA [None]
  - INCORRECT DOSE ADMINISTERED [None]
